FAERS Safety Report 9387665 (Version 1)
Quarter: 2013Q3

REPORT INFORMATION
  Report Type: Spontaneous
  Country: GB (occurrence: None)
  Receive Date: 20130703
  Receipt Date: 20130703
  Transmission Date: 20140515
  Serious: Yes (Other)
  Sender: FDA-Public Use
  Company Number: AUR-APL-2013-05463

PATIENT
  Age: 39 Year
  Sex: Male
  Weight: 95.2 kg

DRUGS (8)
  1. OLANZAPINE (OLANZAPINE) [Suspect]
     Indication: PSYCHOTIC DISORDER
     Route: 048
     Dates: start: 20130514, end: 20130521
  2. DIAZEPAM (DIAZEPAM) [Concomitant]
  3. FUROSEMIDE (FUROSEMIDE) [Concomitant]
  4. MIRTAZAPINE (MIRTAZAPINE) [Concomitant]
  5. NAPROXEN (NAPROXEN) [Concomitant]
  6. OMEPRAZOLE (OMEPRAZOLE) [Concomitant]
  7. THIAMINE (THIAMINE) [Concomitant]
  8. TRAMADOL (TRAMADOL) [Concomitant]

REACTIONS (3)
  - Oedema peripheral [None]
  - Rash erythematous [None]
  - Rash generalised [None]
